FAERS Safety Report 8933834 (Version 1)
Quarter: 2012Q4

REPORT INFORMATION
  Report Type: Report from Study
  Country: GB (occurrence: US)
  Receive Date: 20121129
  Receipt Date: 20121129
  Transmission Date: 20130627
  Serious: Yes (Hospitalization)
  Sender: FDA-Public Use
  Company Number: US-ELI_LILLY_AND_COMPANY-US201211006186

PATIENT
  Age: 63 Year
  Sex: Male
  Weight: 74.4 kg

DRUGS (11)
  1. PEMETREXED [Suspect]
     Indication: MESOTHELIOMA
     Dosage: 500 mg/m2, every 21 D
     Route: 042
     Dates: start: 20090224
  2. BEVACIZUMAB [Suspect]
     Indication: MESOTHELIOMA
     Dosage: 15 mg/kg, every 21 days
     Route: 042
     Dates: start: 20090224, end: 20090224
  3. CISPLATIN [Suspect]
     Indication: MESOTHELIOMA
     Dosage: 75 mg/m2, every 21 D
     Route: 042
     Dates: start: 20090224
  4. NEURONTIN [Concomitant]
     Dosage: UNK
     Dates: start: 20090224
  5. COMPAZINE [Concomitant]
     Dosage: UNK
     Dates: start: 20090224
  6. POTASSIUM [Concomitant]
     Dosage: UNK
     Dates: start: 20090312
  7. TYLENOL /00020001/ [Concomitant]
  8. CEFTAZIDIME [Concomitant]
     Dosage: UNK
     Dates: start: 20090312
  9. DILAUDID [Concomitant]
     Dosage: UNK
     Dates: start: 20090307
  10. LOVENOX [Concomitant]
     Dosage: UNK
     Dates: start: 20090307
  11. PROTONIX [Concomitant]
     Dosage: UNK
     Dates: start: 20090307

REACTIONS (2)
  - Small intestinal obstruction [Unknown]
  - Wound complication [Not Recovered/Not Resolved]
